FAERS Safety Report 8838230 (Version 2)
Quarter: 2015Q3

REPORT INFORMATION
  Report Type: Report from Study
  Country: US (occurrence: US)
  Receive Date: 20121012
  Receipt Date: 20150807
  Transmission Date: 20151125
  Serious: Yes (Other)
  Sender: FDA-Public Use
  Company Number: US-ROCHE-1125521

PATIENT
  Sex: Female
  Weight: 36.5 kg

DRUGS (3)
  1. NUTROPIN AQ [Suspect]
     Active Substance: SOMATROPIN
     Indication: CHRONIC KIDNEY DISEASE
     Dosage: DOSE PER INJECTION IS 0.37 ML
     Route: 058
  2. NUTROPIN AQ [Suspect]
     Active Substance: SOMATROPIN
     Indication: AZOTAEMIA
  3. NUTROPIN AQ [Suspect]
     Active Substance: SOMATROPIN
     Indication: BODY HEIGHT BELOW NORMAL
     Route: 058
     Dates: start: 19970210

REACTIONS (1)
  - Myocardial infarction [Unknown]
